FAERS Safety Report 7908343-1 (Version None)
Quarter: 2011Q4

REPORT INFORMATION
  Report Type: 
  Country: None (occurrence: None)
  Receive Date: 20111109
  Receipt Date: 20111109
  Transmission Date: 20120403
  Serious: Yes (Other)
  Sender: FDA-Public Use
  Company Number: None

PATIENT
  Age: 53 Year
  Sex: Female
  Weight: 71 kg

DRUGS (1)
  1. NITROFURANTOIN [Suspect]
     Indication: URINARY TRACT INFECTION
     Dosage: 50 MG QID ORAL
     Route: 048
     Dates: start: 20110924, end: 20111017

REACTIONS (3)
  - DECREASED ACTIVITY [None]
  - ENCEPHALOPATHY [None]
  - CONFUSIONAL STATE [None]
